FAERS Safety Report 6998554-4 (Version None)
Quarter: 2010Q3

REPORT INFORMATION
  Report Type: 
  Country: None (occurrence: None)
  Receive Date: 20100920
  Receipt Date: 20091110
  Transmission Date: 20110219
  Serious: No
  Sender: FDA-Public Use
  Company Number: US-ASTRAZENECA-2009SE26000

PATIENT
  Age: 38 Year
  Sex: Female

DRUGS (3)
  1. SEROQUEL XR [Suspect]
     Route: 048
  2. LISINOPRIL [Concomitant]
  3. PROZAC [Concomitant]

REACTIONS (3)
  - COLD SWEAT [None]
  - DIARRHOEA [None]
  - NAUSEA [None]
